FAERS Safety Report 12462455 (Version 1)
Quarter: 2016Q2

REPORT INFORMATION
  Report Type: Spontaneous
  Country: US (occurrence: US)
  Receive Date: 20160614
  Receipt Date: 20160614
  Transmission Date: 20160815
  Serious: No
  Sender: FDA-Public Use
  Company Number: US-ACCORD-035227

PATIENT
  Age: 59 Year
  Sex: Female

DRUGS (7)
  1. IBUPROFEN. [Concomitant]
     Active Substance: IBUPROFEN
     Dosage: 2 BID
  2. FLONASE NS [Concomitant]
  3. TYLENOL [Concomitant]
     Active Substance: ACETAMINOPHEN
     Dosage: 1 BID
  4. CYMBALTA [Concomitant]
     Active Substance: DULOXETINE HYDROCHLORIDE
  5. CLONAZEPAM. [Suspect]
     Active Substance: CLONAZEPAM
     Indication: ANXIETY
     Dosage: TOOK ON 27-OCT-2015 AT 8 A.M.
     Route: 048
     Dates: start: 2003, end: 20151027
  6. LYRICA [Concomitant]
     Active Substance: PREGABALIN
  7. SIMVASTATIN. [Concomitant]
     Active Substance: SIMVASTATIN

REACTIONS (2)
  - Drug screen negative [Unknown]
  - Vertigo [Unknown]

NARRATIVE: CASE EVENT DATE: 20151028
